FAERS Safety Report 13888637 (Version 1)
Quarter: 2017Q3

REPORT INFORMATION
  Report Type: Spontaneous
  Country: IT (occurrence: IT)
  Receive Date: 20170822
  Receipt Date: 20170822
  Transmission Date: 20171127
  Serious: Yes (Other)
  Sender: FDA-Public Use
  Company Number: IT-AUROBINDO-AUR-APL-2011-03956

PATIENT
  Age: 75 Year
  Sex: Male

DRUGS (5)
  1. QUETIAPINE. [Suspect]
     Active Substance: QUETIAPINE
     Indication: DEMENTIA ALZHEIMER^S TYPE
     Dosage: 100 MG,TWO TIMES A DAY,
     Route: 065
  2. TICLOPIDINA 250 MG COATED TABLETS [Suspect]
     Active Substance: TICLOPIDINE
     Indication: DEMENTIA ALZHEIMER^S TYPE
     Dosage: 250 MG,TWO TIMES A DAY,
     Route: 065
  3. CITALOPRAM 20 MG FILM COATED TABLETS [Suspect]
     Active Substance: CITALOPRAM HYDROBROMIDE
     Indication: DEMENTIA ALZHEIMER^S TYPE
     Dosage: 20 MG,DAILY,
     Route: 065
  4. CIMETIDINE [Interacting]
     Active Substance: CIMETIDINE
     Indication: GASTRODUODENAL ULCER
     Dosage: UNK UNK,UNK,
     Route: 065
  5. DONEPEZIL. [Suspect]
     Active Substance: DONEPEZIL
     Indication: DEMENTIA ALZHEIMER^S TYPE
     Dosage: 10 MG,DAILY,
     Route: 065

REACTIONS (2)
  - Serotonin syndrome [Recovered/Resolved]
  - Drug interaction [Recovered/Resolved]
